FAERS Safety Report 13860630 (Version 1)
Quarter: 2017Q3

REPORT INFORMATION
  Report Type: Spontaneous
  Country: US (occurrence: US)
  Receive Date: 20170811
  Receipt Date: 20170811
  Transmission Date: 20171127
  Serious: No
  Sender: FDA-Public Use
  Company Number: US-GLAXOSMITHKLINE-US2017GSK123104

PATIENT
  Sex: Female

DRUGS (3)
  1. ENTRESTO [Suspect]
     Active Substance: SACUBITRIL\VALSARTAN
  2. COREG [Suspect]
     Active Substance: CARVEDILOL
     Dosage: UNK, CYC
  3. COREG [Suspect]
     Active Substance: CARVEDILOL
     Dosage: 1 DF, BID

REACTIONS (11)
  - Blood pressure abnormal [Recovered/Resolved]
  - Urticaria [Recovering/Resolving]
  - Joint swelling [Unknown]
  - Dry skin [Recovering/Resolving]
  - Peripheral swelling [Unknown]
  - Chondrocalcinosis pyrophosphate [Recovering/Resolving]
  - Arthropathy [Unknown]
  - Renal disorder [Recovering/Resolving]
  - Blood creatinine increased [Recovering/Resolving]
  - Skin exfoliation [Recovering/Resolving]
  - Condition aggravated [Recovering/Resolving]
